FAERS Safety Report 9220289 (Version 1)
Quarter: 2013Q1

REPORT INFORMATION
  Report Type: Spontaneous
  Country: US (occurrence: None)
  Receive Date: 20120831
  Receipt Date: 20120831
  Transmission Date: 20140127
  Serious: No
  Sender: FDA-Public Use
  Company Number: 1000036627

PATIENT
  Sex: Male

DRUGS (6)
  1. DALIRESP [Suspect]
     Indication: CHRONIC OBSTRUCTIVE PULMONARY DISEASE
     Dates: start: 20120622
  2. HYDROCHLOROTHIAZIDE(HYDROCHLOROTHIAZIDE)(HYDROCHLOROTHIAZIDE) [Concomitant]
  3. SINGULAIR [Concomitant]
  4. ENALAPRIL(ENALAPRIL)(ENALAPRIL) [Concomitant]
  5. VITAMIN B (VITAMIN B COMPLEX) (VITAMIN B COMPLEX) [Concomitant]
  6. VITAMIN D (VITAMIN D) (VITAMIN D) [Concomitant]

REACTIONS (3)
  - Dizziness [None]
  - Decreased appetite [None]
  - Headache [None]
